FAERS Safety Report 9804159 (Version 2)
Quarter: 2014Q1

REPORT INFORMATION
  Report Type: Spontaneous
  Country: US (occurrence: None)
  Receive Date: 20140106
  Receipt Date: 20140124
  Transmission Date: 20141002
  Serious: Yes (Hospitalization, Other)
  Sender: FDA-Public Use
  Company Number: ADR-2014-00002

PATIENT
  Age: 33 Year
  Sex: Female

DRUGS (1)
  1. GABLOFEN [Suspect]
     Indication: MUSCLE SPASTICITY

REACTIONS (7)
  - Fall [None]
  - Back injury [None]
  - Drug withdrawal syndrome [None]
  - Hallucination [None]
  - Pruritus [None]
  - Muscle spasticity [None]
  - Unevaluable event [None]
